FAERS Safety Report 4807940-X (Version None)
Quarter: 2005Q4

REPORT INFORMATION
  Report Type: 
  Country: None (occurrence: None)
  Receive Date: 20051021
  Receipt Date: 20051018
  Transmission Date: 20060501
  Serious: Yes (Death, Hospitalization)
  Sender: FDA-Public Use
  Company Number: TPA2005A01278

PATIENT
  Age: 43 Year
  Sex: Male
  Weight: 139.2543 kg

DRUGS (11)
  1. ACTOS [Suspect]
     Indication: DIABETES MELLITUS NON-INSULIN-DEPENDENT
     Dosage: 45 MG, 1 IN 1 D, PER ORAL
     Route: 048
     Dates: start: 19990101, end: 20001016
  2. FUROSEMIDE [Concomitant]
  3. GLYNASE [Concomitant]
  4. COUMADIN [Concomitant]
  5. SYNTHROID [Concomitant]
  6. DYAZIDE [Concomitant]
  7. ZESTRIL [Concomitant]
  8. GARLIC OIL CAPSULES (ALLIUM STAIVUM) [Concomitant]
  9. CENTRUM MULTIVITAMIN (CENTRUM) [Concomitant]
  10. PROZAC [Concomitant]
  11. HALDOL [Concomitant]

REACTIONS (5)
  - DYSPNOEA [None]
  - FATIGUE [None]
  - FLUID RETENTION [None]
  - PAIN [None]
  - WEIGHT INCREASED [None]
